FAERS Safety Report 7597290-3 (Version None)
Quarter: 2011Q3

REPORT INFORMATION
  Report Type: 
  Country: None (occurrence: None)
  Receive Date: 20110708
  Receipt Date: 20110310
  Transmission Date: 20111222
  Serious: No
  Sender: FDA-Public Use
  Company Number: US-GLAXOSMITHKLINE-A0917567A

PATIENT
  Age: 47 Year
  Sex: Male

DRUGS (3)
  1. FLOVENT [Suspect]
     Indication: ASTHMA
     Dosage: 2PUFF TWICE PER DAY
     Route: 055
  2. PROAIR HFA [Suspect]
     Dosage: 2PUFF TWICE PER DAY
     Route: 055
  3. NO CONCURRENT MEDICATION [Concomitant]

REACTIONS (1)
  - BREATH ODOUR [None]
